FAERS Safety Report 8262472 (Version 2)
Quarter: 2012Q4

REPORT INFORMATION
  Report Type: 
  Country: GB (occurrence: GB)
  Receive Date: 20111124
  Receipt Date: 20121019
  Transmission Date: 20130627
  Serious: Yes (Hospitalization, Other)
  Sender: FDA-Public Use
  Company Number: GB-RANBAXY-2011R1-50525

PATIENT
  Age: 22 Year
  Sex: Female

DRUGS (1)
  1. AMLODIPINE [Suspect]
     Indication: PRODUCT USED FOR UNKNOWN INDICATION
     Dosage: UNK
     Route: 048

REACTIONS (4)
  - Non-cardiogenic pulmonary oedema [Recovering/Resolving]
  - Intentional overdose [Recovered/Resolved]
  - Hypocalcaemia [Recovering/Resolving]
  - Cardiac failure congestive [Recovering/Resolving]
